FAERS Safety Report 5072438-3 (Version None)
Quarter: 2006Q3

REPORT INFORMATION
  Report Type: 
  Country: None (occurrence: None)
  Receive Date: 20060807
  Receipt Date: 20060726
  Transmission Date: 20061208
  Serious: Yes (Death, Hospitalization)
  Sender: FDA-Public Use
  Company Number: US-JNJFOC-20051104769

PATIENT
  Sex: Female
  Weight: 95.26 kg

DRUGS (11)
  1. ORTHO EVRA [Suspect]
     Indication: CONTRACEPTION
     Route: 062
  2. ORTHO EVRA [Suspect]
     Indication: OFF LABEL USE
     Route: 062
  3. ORTHO EVRA [Suspect]
     Indication: DYSMENORRHOEA
     Route: 062
  4. LIPITOR [Concomitant]
     Indication: HYPERLIPIDAEMIA
     Route: 048
  5. ZYRTEC [Concomitant]
     Route: 048
  6. VALTREX [Concomitant]
     Route: 048
  7. VALTREX [Concomitant]
     Indication: HERPES VIRUS INFECTION
     Route: 048
  8. MERIDIA [Concomitant]
     Route: 048
  9. MERIDIA [Concomitant]
     Indication: OBESITY
     Route: 048
  10. ADVAIR DISKUS 100/50 [Concomitant]
     Indication: ASTHMA
     Route: 055
  11. ALBUTEROL SPIROS [Concomitant]
     Indication: ASTHMA
     Route: 055

REACTIONS (3)
  - ASTHMA [None]
  - HERPES SIMPLEX [None]
  - PULMONARY EMBOLISM [None]
